FAERS Safety Report 15715814 (Version 1)
Quarter: 2018Q4

REPORT INFORMATION
  Report Type: Spontaneous
  Country: BG (occurrence: BG)
  Receive Date: 20181212
  Receipt Date: 20181212
  Transmission Date: 20190205
  Serious: Yes (Hospitalization, Other)
  Sender: FDA-Public Use
  Company Number: BG-ASTRAZENECA-2018SF61535

PATIENT
  Age: 48 Year
  Sex: Male

DRUGS (9)
  1. BRILIQUE [Suspect]
     Active Substance: TICAGRELOR
     Dosage: 60.0MG UNKNOWN
     Route: 048
  2. TORASEMIDE [Concomitant]
     Active Substance: TORSEMIDE
  3. SPIRONOLACTONE. [Concomitant]
     Active Substance: SPIRONOLACTONE
  4. RAMIPRIL. [Concomitant]
     Active Substance: RAMIPRIL
  5. BRILIQUE [Suspect]
     Active Substance: TICAGRELOR
     Route: 048
  6. AMIODARONE HYDROCHLORIDE. [Concomitant]
     Active Substance: AMIODARONE HYDROCHLORIDE
  7. BISOPROLOL [Concomitant]
     Active Substance: BISOPROLOL
  8. ROSUVASTATIN. [Suspect]
     Active Substance: ROSUVASTATIN
     Route: 048
  9. ACETYLSALICYLIC ACID [Concomitant]
     Active Substance: ASPIRIN

REACTIONS (2)
  - Vascular stent thrombosis [Unknown]
  - Acute coronary syndrome [Unknown]
